FAERS Safety Report 5581539-2 (Version None)
Quarter: 2008Q1

REPORT INFORMATION
  Report Type: 
  Country: None (occurrence: None)
  Receive Date: 20080103
  Receipt Date: 20080103
  Transmission Date: 20080703
  Serious: Yes (Other)
  Sender: FDA-Public Use
  Company Number: None

PATIENT
  Age: 90 Year
  Sex: Male
  Weight: 63.5036 kg

DRUGS (1)
  1. LISINOPRIL [Suspect]
     Indication: HYPERTENSION
     Dates: start: 20071216, end: 20071230

REACTIONS (7)
  - DRUG HYPERSENSITIVITY [None]
  - ERYTHEMA [None]
  - FLUID RETENTION [None]
  - JOINT SWELLING [None]
  - PRURITUS [None]
  - PSYCHOMOTOR HYPERACTIVITY [None]
  - SKIN DISCOLOURATION [None]
